APPROVED DRUG PRODUCT: ALBUTEROL SULFATE
Active Ingredient: ALBUTEROL SULFATE
Strength: EQ 0.083% BASE
Dosage Form/Route: SOLUTION;INHALATION
Application: A207857 | Product #001 | TE Code: AN
Applicant: SUN PHARMACEUTICAL INDUSTRIES LTD
Approved: Jul 21, 2017 | RLD: No | RS: No | Type: RX